FAERS Safety Report 9460193 (Version 1)
Quarter: 2013Q3

REPORT INFORMATION
  Report Type: Spontaneous
  Country: TR (occurrence: TR)
  Receive Date: 20130815
  Receipt Date: 20130815
  Transmission Date: 20140515
  Serious: Yes (Hospitalization, Other)
  Sender: FDA-Public Use
  Company Number: TR-WATSON-2013-14202

PATIENT
  Age: 16 Year
  Sex: Female

DRUGS (2)
  1. VERAPAMIL HYDROCHLORIDE (WATSON LABORATORIES) [Suspect]
     Indication: PRODUCT USED FOR UNKNOWN INDICATION
     Dosage: 8 MG/KG, UNKNOWN
     Route: 065
  2. FLUCONAZOLE [Concomitant]
     Indication: PRODUCT USED FOR UNKNOWN INDICATION
     Dosage: UNKNOWN
     Route: 065

REACTIONS (4)
  - Atrioventricular block [Unknown]
  - Electrocardiogram QT prolonged [Unknown]
  - Hypotension [Recovered/Resolved]
  - Overdose [Recovered/Resolved]
